FAERS Safety Report 21238079 (Version 1)
Quarter: 2022Q3

REPORT INFORMATION
  Report Type: Spontaneous
  Country: DE (occurrence: DE)
  Receive Date: 20220822
  Receipt Date: 20220822
  Transmission Date: 20221027
  Serious: Yes (Other)
  Sender: FDA-Public Use
  Company Number: DE-CELLTRION INC.-2022DE013182

PATIENT

DRUGS (4)
  1. INFLIXIMAB [Suspect]
     Active Substance: INFLIXIMAB
     Indication: Ulcerative keratitis
     Dosage: REPEATED AND CONTINUOUSLY STRETCHED FOR UP TO FOUR WEEKS INTERVAL/FOR 12 MONTHS WITH THREE TO FOUR W
     Dates: start: 2018, end: 202102
  2. MYCOPHENOLATE MOFETIL [Concomitant]
     Active Substance: MYCOPHENOLATE MOFETIL
     Indication: Ulcerative keratitis
     Dosage: 2 X 1000 MG
     Route: 065
  3. DOXYCYCLINE [Concomitant]
     Active Substance: DOXYCYCLINE
     Indication: Ulcerative keratitis
     Dosage: UNKNOWN
     Route: 065
  4. CYCLOSPORINE [Concomitant]
     Active Substance: CYCLOSPORINE
     Indication: Ulcerative keratitis
     Dosage: UNKNOWN

REACTIONS (3)
  - Ulcerative keratitis [Unknown]
  - Photophobia [Unknown]
  - Off label use [Unknown]
